FAERS Safety Report 8263703-7 (Version None)
Quarter: 2012Q2

REPORT INFORMATION
  Report Type: 
  Country: None (occurrence: None)
  Receive Date: 20120405
  Receipt Date: 20120323
  Transmission Date: 20120825
  Serious: Yes (Hospitalization)
  Sender: FDA-Public Use
  Company Number: GB-ROCHE-1052287

PATIENT
  Sex: Female
  Weight: 86 kg

DRUGS (5)
  1. HYDROXYCHLOROQUINE SULFATE [Concomitant]
  2. MABTHERA [Suspect]
     Indication: RHEUMATOID ARTHRITIS
     Dosage: DATE OF LAST DOSE PRIOR TO SAE 12/APR/2011
     Dates: start: 20110329
  3. WARFARIN SODIUM [Concomitant]
  4. NEBIVOLOL [Concomitant]
  5. METHOTREXATE [Concomitant]

REACTIONS (2)
  - PRODUCTIVE COUGH [None]
  - ATRIAL FIBRILLATION [None]
